FAERS Safety Report 7544260-7 (Version None)
Quarter: 2011Q2

REPORT INFORMATION
  Report Type: 
  Country: None (occurrence: None)
  Receive Date: 20110613
  Receipt Date: 20070911
  Transmission Date: 20111010
  Serious: Yes (Death, Hospitalization, Other)
  Sender: FDA-Public Use
  Company Number: PHMT2007CA01276

PATIENT
  Sex: Male

DRUGS (3)
  1. SANDOSTATIN LAR [Suspect]
     Indication: CARCINOID TUMOUR
     Dosage: 30 MG, QMO
     Route: 030
     Dates: start: 20050915, end: 20070528
  2. DIURETICS [Concomitant]
  3. SANDOSTATIN [Suspect]
     Dosage: UNK, TID
     Route: 058

REACTIONS (3)
  - BILE DUCT OBSTRUCTION [None]
  - DEATH [None]
  - LOCALISED OEDEMA [None]
